FAERS Safety Report 9287767 (Version 3)
Quarter: 2013Q2

REPORT INFORMATION
  Report Type: Spontaneous
  Country: US (occurrence: US)
  Receive Date: 20130514
  Receipt Date: 20130620
  Transmission Date: 20140414
  Serious: No
  Sender: FDA-Public Use
  Company Number: US-PFIZER INC-2013146898

PATIENT
  Age: 45 Year
  Sex: Female

DRUGS (5)
  1. XELJANZ [Suspect]
     Indication: RHEUMATOID ARTHRITIS
     Dosage: 5 MG, BID
     Route: 048
     Dates: start: 20130426
  2. LEXAPRO [Concomitant]
     Dosage: 10 MG, QD
  3. LISINOPRIL [Concomitant]
     Dosage: 10 MG, QD
  4. DICLOFENAC [Concomitant]
     Dosage: 50 MG, TID
  5. OMEPRAZOLE [Concomitant]
     Dosage: 20 MG, OD

REACTIONS (4)
  - Upper respiratory tract infection [Unknown]
  - Amnesia [Not Recovered/Not Resolved]
  - Disturbance in attention [Not Recovered/Not Resolved]
  - Bronchitis [Recovered/Resolved]
